FAERS Safety Report 24582378 (Version 1)
Quarter: 2024Q4

REPORT INFORMATION
  Report Type: Spontaneous
  Country: US (occurrence: US)
  Receive Date: 20241106
  Receipt Date: 20241106
  Transmission Date: 20250115
  Serious: No
  Sender: TEVA
  Company Number: US-TEVA-VS-3236454

PATIENT
  Age: 27 Year
  Sex: Female

DRUGS (1)
  1. UZEDY [Suspect]
     Active Substance: RISPERIDONE
     Indication: Schizoaffective disorder
     Dosage: 125/0.35 MG/ML
     Route: 058

REACTIONS (2)
  - Therapeutic response shortened [Unknown]
  - Off label use [Unknown]
